FAERS Safety Report 8376090-0 (Version None)
Quarter: 2012Q2

REPORT INFORMATION
  Report Type: 
  Country: None (occurrence: None)
  Receive Date: 20120522
  Receipt Date: 20120515
  Transmission Date: 20120825
  Serious: Yes (Hospitalization, Other)
  Sender: FDA-Public Use
  Company Number: PHHY2012BR042844

PATIENT
  Sex: Male

DRUGS (5)
  1. DIOVAN [Suspect]
     Indication: CARDIOVASCULAR DISORDER
     Dosage: 1 DF, 80 MG , DAILY
  2. INDAPAMIDE [Concomitant]
     Dosage: 1 DF, 1.5 MG
     Dates: start: 20120101
  3. ASPIRIN [Concomitant]
     Dosage: 2 DF,
  4. CRISTON [Concomitant]
     Dosage: 1DF,  10 MG,  TABLET AT NIGHT
     Dates: start: 20120101
  5. ASPIRIN [Concomitant]
     Indication: ANTICOAGULANT THERAPY
     Dosage: 1 DF, 100 MG

REACTIONS (3)
  - HEMIPLEGIA [None]
  - EATING DISORDER [None]
  - CEREBROVASCULAR ACCIDENT [None]
